FAERS Safety Report 13924136 (Version 1)
Quarter: 2017Q3

REPORT INFORMATION
  Report Type: Spontaneous
  Country: US (occurrence: None)
  Receive Date: 20170830
  Receipt Date: 20170830
  Transmission Date: 20171127
  Serious: No
  Sender: FDA-Public Use
  Company Number: None

PATIENT
  Age: 54 Year
  Sex: Male

DRUGS (1)
  1. TEMOZOLOMIDE CAP 180MG [Suspect]
     Active Substance: TEMOZOLOMIDE

REACTIONS (4)
  - Constipation [None]
  - White blood cell count decreased [None]
  - Weight decreased [None]
  - Therapy cessation [None]

NARRATIVE: CASE EVENT DATE: 20170801
